FAERS Safety Report 9782535 (Version 1)
Quarter: 2013Q4

REPORT INFORMATION
  Report Type: Report from Study
  Country: MX (occurrence: MX)
  Receive Date: 20131226
  Receipt Date: 20131226
  Transmission Date: 20140711
  Serious: Yes (Death, Hospitalization, Other)
  Sender: FDA-Public Use
  Company Number: PHHY2013MX150173

PATIENT
  Age: 63 Year
  Sex: Female

DRUGS (3)
  1. GALVUS MET [Suspect]
     Indication: BLOOD GLUCOSE ABNORMAL
     Dosage: 2 DF (METF 1000MG, VILD 500MG) DAILY
     Route: 048
  2. GALVUS MET [Suspect]
     Indication: BLOOD PRESSURE ABNORMAL
  3. GALVUS MET [Suspect]
     Indication: OFF LABEL USE

REACTIONS (2)
  - Respiratory arrest [Fatal]
  - Pneumonia [Not Recovered/Not Resolved]
